FAERS Safety Report 8404832-4 (Version None)
Quarter: 2012Q2

REPORT INFORMATION
  Report Type: 
  Country: None (occurrence: None)
  Receive Date: 20120601
  Receipt Date: 20120524
  Transmission Date: 20120825
  Serious: Yes (Hospitalization, Other)
  Sender: FDA-Public Use
  Company Number: FR-RB-040802-12

PATIENT
  Age: 41 Year
  Sex: Male

DRUGS (1)
  1. SUBUTEX [Suspect]
     Indication: DRUG DEPENDENCE
     Dosage: UNKNOWN DOSAGE DETAILS
     Route: 042

REACTIONS (2)
  - INTERVERTEBRAL DISCITIS [None]
  - INTENTIONAL DRUG MISUSE [None]
